FAERS Safety Report 4290085-8 (Version None)
Quarter: 2004Q1

REPORT INFORMATION
  Report Type: 
  Country: None (occurrence: None)
  Receive Date: 20040210
  Receipt Date: 20040204
  Transmission Date: 20041129
  Serious: Yes (Hospitalization, Other)
  Sender: FDA-Public Use
  Company Number: US-BRISTOL-MYERS SQUIBB COMPANY-12496212

PATIENT
  Age: 82 Year
  Sex: Female

DRUGS (3)
  1. GATIFLOXACIN TABS [Suspect]
     Indication: PNEUMONIA
     Route: 048
  2. GLUCOPHAGE [Concomitant]
  3. GLUCOTROL XL [Concomitant]

REACTIONS (1)
  - HYPERGLYCAEMIA [None]
